FAERS Safety Report 23327058 (Version 1)
Quarter: 2023Q4

REPORT INFORMATION
  Report Type: Spontaneous
  Country: JP (occurrence: JP)
  Receive Date: 20231221
  Receipt Date: 20231221
  Transmission Date: 20240110
  Serious: Yes (Hospitalization, Other)
  Sender: FDA-Public Use
  Company Number: A202300664-001

PATIENT
  Sex: Male

DRUGS (12)
  1. BENDAMUSTINE HYDROCHLORIDE [Suspect]
     Active Substance: BENDAMUSTINE HYDROCHLORIDE
     Indication: Abdominal neoplasm
     Dosage: UNK, CYCLE 1 GB THERAPY
     Route: 042
  2. BENDAMUSTINE HYDROCHLORIDE [Suspect]
     Active Substance: BENDAMUSTINE HYDROCHLORIDE
     Dosage: UNK, CYCLE 2 GB THERAPY
     Route: 042
  3. BENDAMUSTINE HYDROCHLORIDE [Suspect]
     Active Substance: BENDAMUSTINE HYDROCHLORIDE
     Dosage: UNK, CYCLE 3 GB THERAPY
     Route: 042
  4. BENDAMUSTINE HYDROCHLORIDE [Suspect]
     Active Substance: BENDAMUSTINE HYDROCHLORIDE
     Dosage: UNK, CYCLE 4 GB THERAPY
     Route: 042
  5. BENDAMUSTINE HYDROCHLORIDE [Suspect]
     Active Substance: BENDAMUSTINE HYDROCHLORIDE
     Dosage: UNK, CYCLE 5 GB THERAPY
     Route: 042
  6. BENDAMUSTINE HYDROCHLORIDE [Suspect]
     Active Substance: BENDAMUSTINE HYDROCHLORIDE
     Dosage: UNK, CYCLE 6 GB THERAPY
     Route: 042
  7. GAZYVA [Concomitant]
     Active Substance: OBINUTUZUMAB
     Indication: Abdominal neoplasm
     Dosage: UNK, CYCLE 1 GB THERAPY
     Route: 042
  8. GAZYVA [Concomitant]
     Active Substance: OBINUTUZUMAB
     Dosage: UNK, CYCLE 2 GB THERAPY
     Route: 042
  9. GAZYVA [Concomitant]
     Active Substance: OBINUTUZUMAB
     Dosage: UNK, CYCLE 3 GB THERAPY
     Route: 042
  10. GAZYVA [Concomitant]
     Active Substance: OBINUTUZUMAB
     Dosage: UNK, CYCLE 4 GB THERAPY
     Route: 042
  11. GAZYVA [Concomitant]
     Active Substance: OBINUTUZUMAB
     Dosage: UNK, CYCLE 5 GB THERAPY
     Route: 042
  12. GAZYVA [Concomitant]
     Active Substance: OBINUTUZUMAB
     Dosage: UNK, CYCLE 6 GB THERAPY
     Route: 042

REACTIONS (3)
  - Fall [Unknown]
  - Spinal cord injury [Recovering/Resolving]
  - Febrile neutropenia [Recovering/Resolving]
